FAERS Safety Report 20430936 (Version 1)
Quarter: 2022Q1

REPORT INFORMATION
  Report Type: Spontaneous
  Country: US (occurrence: US)
  Receive Date: 20220204
  Receipt Date: 20220204
  Transmission Date: 20220423
  Serious: No
  Sender: FDA-Public Use
  Company Number: US-OYSTER POINT PHARMA, INC.-2022OYS00038

PATIENT
  Sex: Female

DRUGS (1)
  1. TYRVAYA [Suspect]
     Active Substance: VARENICLINE TARTRATE
     Indication: Dry eye
     Dosage: IN BOTH NOSTRILS
     Route: 045
     Dates: start: 20220111

REACTIONS (2)
  - Urticaria [Unknown]
  - Eye swelling [Unknown]

NARRATIVE: CASE EVENT DATE: 20220111
